FAERS Safety Report 21945600 (Version 4)
Quarter: 2023Q2

REPORT INFORMATION
  Report Type: Spontaneous
  Country: US (occurrence: US)
  Receive Date: 20230202
  Receipt Date: 20230530
  Transmission Date: 20230722
  Serious: No
  Sender: FDA-Public Use
  Company Number: US-BRISTOL-MYERS SQUIBB COMPANY-2023-015573

PATIENT
  Age: 77 Year
  Sex: Male
  Weight: 62.6 kg

DRUGS (1)
  1. IDHIFA [Suspect]
     Active Substance: ENASIDENIB MESYLATE
     Indication: Acute myeloid leukaemia
     Route: 048
     Dates: start: 20221202

REACTIONS (4)
  - Fatigue [Unknown]
  - Chest pain [Unknown]
  - Product dose omission issue [Unknown]
  - Fatigue [Unknown]
